FAERS Safety Report 11818854 (Version 1)
Quarter: 2015Q4

REPORT INFORMATION
  Report Type: Spontaneous
  Country: US (occurrence: None)
  Receive Date: 20151209
  Receipt Date: 20151209
  Transmission Date: 20160305
  Serious: Yes (Hospitalization)
  Sender: FDA-Public Use
  Company Number: None

PATIENT
  Age: 89 Year
  Sex: Male
  Weight: 60.7 kg

DRUGS (14)
  1. MACROBID [Concomitant]
     Active Substance: NITROFURANTOIN\NITROFURANTOIN MONOHYDRATE
  2. CA VITD [Concomitant]
  3. THERAGRAN [Concomitant]
     Active Substance: VITAMINS
  4. VITB12 [Concomitant]
  5. PRAVACHOL [Concomitant]
     Active Substance: PRAVASTATIN SODIUM
  6. FLORASTOR [Concomitant]
     Active Substance: SACCHAROMYCES CEREVISIAE
  7. APAP [Concomitant]
     Active Substance: ACETAMINOPHEN
  8. DELTASONE [Concomitant]
     Active Substance: PREDNISONE
  9. ZANTAC [Concomitant]
     Active Substance: RANITIDINE HYDROCHLORIDE
  10. VESICARE [Concomitant]
     Active Substance: SOLIFENACIN SUCCINATE
  11. APIXABAN [Suspect]
     Active Substance: APIXABAN
     Indication: ATRIAL FIBRILLATION
     Dosage: CHRONIC
     Route: 048
  12. COREG [Suspect]
     Active Substance: CARVEDILOL
     Dosage: Q24HR
     Route: 048
  13. LASIX [Concomitant]
     Active Substance: FUROSEMIDE
  14. MULTAQ [Suspect]
     Active Substance: DRONEDARONE
     Indication: ATRIAL FIBRILLATION
     Dosage: CHRONIC
     Route: 048

REACTIONS (4)
  - Drug interaction [None]
  - Fall [None]
  - Haematoma [None]
  - Haemorrhagic anaemia [None]

NARRATIVE: CASE EVENT DATE: 20150519
